FAERS Safety Report 5840111-7 (Version None)
Quarter: 2008Q3

REPORT INFORMATION
  Report Type: 
  Country: None (occurrence: None)
  Receive Date: 20080811
  Receipt Date: 20080805
  Transmission Date: 20090109
  Serious: Yes (Life-Threatening, Hospitalization)
  Sender: FDA-Public Use
  Company Number: B0532661A

PATIENT
  Age: 34 Year
  Sex: Male

DRUGS (2)
  1. CLAMOXYL DUO FORTE [Suspect]
     Indication: EAR INFECTION
     Route: 048
     Dates: start: 20080728, end: 20080728
  2. NEO-MERCAZOLE TAB [Concomitant]
     Route: 065

REACTIONS (6)
  - ANAPHYLACTIC SHOCK [None]
  - BLOOD PRESSURE DECREASED [None]
  - PULSE ABSENT [None]
  - RASH [None]
  - SWELLING FACE [None]
  - URTICARIA [None]
